FAERS Safety Report 5085471-2 (Version None)
Quarter: 2006Q3

REPORT INFORMATION
  Report Type: 
  Country: None (occurrence: None)
  Receive Date: 20060822
  Receipt Date: 20060808
  Transmission Date: 20061208
  Serious: Yes (Hospitalization)
  Sender: FDA-Public Use
  Company Number: PHBS2006DE12016

PATIENT
  Age: 16 Year
  Sex: Female

DRUGS (2)
  1. MYCOPHENOLATE [Suspect]
     Indication: LIVER TRANSPLANT
     Dosage: 500 MG, BID
  2. TACROLIMUS [Suspect]
     Indication: LIVER TRANSPLANT
     Dosage: 3 MG, BID

REACTIONS (7)
  - ABDOMINAL PAIN [None]
  - ABSCESS [None]
  - COLITIS [None]
  - COLITIS ULCERATIVE [None]
  - DIARRHOEA HAEMORRHAGIC [None]
  - HYPERTENSION [None]
  - INFLAMMATORY BOWEL DISEASE [None]
